FAERS Safety Report 10277813 (Version 3)
Quarter: 2014Q3

REPORT INFORMATION
  Report Type: Report from Study
  Country: US (occurrence: US)
  Receive Date: 20140704
  Receipt Date: 20140822
  Transmission Date: 20150326
  Serious: Yes (Other)
  Sender: FDA-Public Use
  Company Number: US-BIOGENIDEC-2014BI064014

PATIENT
  Age: 63 Year
  Sex: Female

DRUGS (20)
  1. BENICAR [Concomitant]
     Active Substance: OLMESARTAN MEDOXOMIL
  2. AMPYRA [Concomitant]
     Active Substance: DALFAMPRIDINE
  3. PROVIGIL [Concomitant]
     Active Substance: MODAFINIL
  4. VITAMIN B3 [Concomitant]
     Active Substance: NIACIN
  5. TYSABRI [Suspect]
     Active Substance: NATALIZUMAB
     Indication: MULTIPLE SCLEROSIS
     Route: 042
     Dates: start: 20120106, end: 20140516
  6. LEXAPRO [Concomitant]
     Active Substance: ESCITALOPRAM OXALATE
  7. VITAMIN B12 [Concomitant]
     Active Substance: CYANOCOBALAMIN
  8. FOLIC ACID. [Concomitant]
     Active Substance: FOLIC ACID
  9. AGGRENOX [Concomitant]
     Active Substance: ASPIRIN\DIPYRIDAMOLE
  10. ELIQUIS [Concomitant]
     Active Substance: APIXABAN
  11. VITAMIN B6 [Concomitant]
     Active Substance: PYRIDOXINE HYDROCHLORIDE
  12. LISINOPRIL. [Concomitant]
     Active Substance: LISINOPRIL
  13. ROPINIROLE. [Concomitant]
     Active Substance: ROPINIROLE
  14. HCTZ [Concomitant]
     Active Substance: HYDROCHLOROTHIAZIDE
  15. PROTONIX [Concomitant]
     Active Substance: PANTOPRAZOLE SODIUM
  16. SIMVISTATIN [Concomitant]
     Active Substance: SIMVASTATIN
  17. METROPOLOL [Concomitant]
     Active Substance: METOPROLOL
  18. PLAVIX [Concomitant]
     Active Substance: CLOPIDOGREL BISULFATE
  19. CALTRATE [Concomitant]
     Active Substance: CALCIUM CARBONATE
  20. VITAMIN D [Concomitant]
     Active Substance: CHOLECALCIFEROL

REACTIONS (1)
  - Invasive ductal breast carcinoma [Not Recovered/Not Resolved]

NARRATIVE: CASE EVENT DATE: 20140327
